FAERS Safety Report 24113318 (Version 1)
Quarter: 2024Q3

REPORT INFORMATION
  Report Type: Spontaneous
  Country: BR (occurrence: BR)
  Receive Date: 20240719
  Receipt Date: 20240719
  Transmission Date: 20241016
  Serious: Yes (Hospitalization)
  Sender: QUAGEN PHARMACEUTICALS
  Company Number: BR-QUAGEN-2024QUALIT00219

PATIENT
  Age: 55 Year
  Sex: Male

DRUGS (5)
  1. VALPROIC ACID [Suspect]
     Active Substance: VALPROIC ACID
     Indication: Epilepsy
     Route: 065
  2. LOSARTAN [Concomitant]
     Active Substance: LOSARTAN
     Indication: Product used for unknown indication
     Route: 065
  3. SIMVASTATIN [Concomitant]
     Active Substance: SIMVASTATIN
     Indication: Product used for unknown indication
     Route: 065
  4. HYDRALAZINE [Concomitant]
     Active Substance: HYDRALAZINE HYDROCHLORIDE
     Indication: Product used for unknown indication
     Route: 065
  5. ASPIRIN [Concomitant]
     Active Substance: ASPIRIN
     Indication: Product used for unknown indication
     Route: 065

REACTIONS (1)
  - Pleural effusion [Recovered/Resolved]
